FAERS Safety Report 19465348 (Version 2)
Quarter: 2021Q3

REPORT INFORMATION
  Report Type: Spontaneous
  Country: US (occurrence: US)
  Receive Date: 20210624
  Receipt Date: 20210716
  Transmission Date: 20211014
  Serious: No
  Sender: FDA-Public Use
  Company Number: NVSC2021US136106

PATIENT
  Sex: Female

DRUGS (4)
  1. RITALIN [Suspect]
     Active Substance: METHYLPHENIDATE HYDROCHLORIDE
     Dosage: 10 MG, BID (ONE TABLET AROUND 10:00 AM AND ANOTHER TABLET AROUND 2:00 PM EACH DAY)
     Route: 065
  2. GEMFIBROZIL. [Concomitant]
     Active Substance: GEMFIBROZIL
     Indication: BLOOD CHOLESTEROL
     Dosage: 600 MG, BID
     Route: 065
  3. RITALIN [Suspect]
     Active Substance: METHYLPHENIDATE HYDROCHLORIDE
     Indication: NARCOLEPSY
     Dosage: 4 DF, QD
     Route: 065
     Dates: start: 1968
  4. RITALIN [Suspect]
     Active Substance: METHYLPHENIDATE HYDROCHLORIDE
     Dosage: 10 MG, BID (ONE TABLET AROUND 10:00 AM AND ANOTHER TABLET AROUND 2:00 PM EACH DAY)
     Route: 065

REACTIONS (7)
  - Hypersomnia [Unknown]
  - Memory impairment [Unknown]
  - Product colour issue [Unknown]
  - Vitamin B12 increased [Unknown]
  - Weight decreased [Unknown]
  - Fatigue [Unknown]
  - Product use complaint [Unknown]
